FAERS Safety Report 5518622-3 (Version None)
Quarter: 2007Q4

REPORT INFORMATION
  Report Type: 
  Country: None (occurrence: None)
  Receive Date: 20071115
  Receipt Date: 20071105
  Transmission Date: 20080405
  Serious: Yes (Other)
  Sender: FDA-Public Use
  Company Number: GB-PFIZER INC-2007094492

PATIENT

DRUGS (1)
  1. NICOTINE NASAL SPRAY [Suspect]
     Indication: SMOKING CESSATION THERAPY
     Dosage: FREQ:1 BOX EVERY ONE/TWO DAYS
     Route: 045

REACTIONS (2)
  - DEPENDENCE [None]
  - INCORRECT DRUG ADMINISTRATION DURATION [None]
